FAERS Safety Report 20185164 (Version 2)
Quarter: 2022Q1

REPORT INFORMATION
  Report Type: Spontaneous
  Country: JP (occurrence: JP)
  Receive Date: 20211215
  Receipt Date: 20220218
  Transmission Date: 20220423
  Serious: Yes (Other)
  Sender: FDA-Public Use
  Company Number: JP-ASTELLAS-2021JP024076

PATIENT
  Age: 88 Year
  Sex: Male
  Weight: 38 kg

DRUGS (6)
  1. XTANDI [Suspect]
     Active Substance: ENZALUTAMIDE
     Indication: Hormone-refractory prostate cancer
     Route: 048
     Dates: start: 20210707, end: 20211019
  2. MAGNESIUM OXIDE [Concomitant]
     Active Substance: MAGNESIUM OXIDE
     Indication: Product used for unknown indication
     Route: 048
     Dates: start: 20190716
  3. AMBROXOL HYDROCHLORIDE [Concomitant]
     Active Substance: AMBROXOL HYDROCHLORIDE
     Indication: Product used for unknown indication
     Route: 048
     Dates: start: 20190730
  4. DEGARELIX [Concomitant]
     Active Substance: DEGARELIX
     Indication: Product used for unknown indication
     Route: 058
     Dates: start: 20191103
  5. Adona [Concomitant]
     Indication: Product used for unknown indication
     Route: 048
     Dates: start: 20210120
  6. LANSOPRAZOLE [Concomitant]
     Active Substance: LANSOPRAZOLE
     Indication: Product used for unknown indication
     Route: 048
     Dates: start: 20210609

REACTIONS (4)
  - Hallucination [Recovering/Resolving]
  - Hypoaesthesia [Recovered/Resolved]
  - Prescribed underdose [Unknown]
  - Off label use [Unknown]

NARRATIVE: CASE EVENT DATE: 20210707
